FAERS Safety Report 4621591-1 (Version None)
Quarter: 2005Q1

REPORT INFORMATION
  Report Type: 
  Country: None (occurrence: None)
  Receive Date: 20050328
  Receipt Date: 20031125
  Transmission Date: 20050727
  Serious: No
  Sender: FDA-Public Use
  Company Number: 9971

PATIENT
  Age: 61 Year
  Sex: Female

DRUGS (3)
  1. METHOTREXATE [Suspect]
     Dosage: 100 MG ONCE
  2. DIAZEPAM [Suspect]
     Dosage: 100 MG ONCE
  3. ETHANOL [Suspect]

REACTIONS (1)
  - INTENTIONAL MISUSE [None]
